FAERS Safety Report 4283848-6 (Version None)
Quarter: 2004Q1

REPORT INFORMATION
  Report Type: 
  Country: None (occurrence: None)
  Receive Date: 20040130
  Receipt Date: 20040120
  Transmission Date: 20041129
  Serious: Yes (Hospitalization)
  Sender: FDA-Public Use
  Company Number: US-JNJFOC-20040103889

PATIENT
  Age: 57 Year
  Sex: Female

DRUGS (18)
  1. INFLIXIMAB (INFLIXIMAB, RECOMBINANT) LYOPHILIZED POWDER [Suspect]
     Indication: RHEUMATOID ARTHRITIS
     Dosage: INTRAVENOUS
     Route: 042
     Dates: start: 20020318, end: 20030409
  2. INFLIXIMAB (INFLIXIMAB, RECOMBINANT) LYOPHILIZED POWDER [Suspect]
     Indication: RHEUMATOID ARTHRITIS
     Dosage: INTRAVENOUS
     Route: 042
     Dates: start: 20031105
  3. OXYCONTIN [Concomitant]
  4. OXYCODONE HCL [Concomitant]
  5. TYLENOL [Concomitant]
  6. ZESTRIL [Concomitant]
  7. PREVACID [Concomitant]
  8. PERSANTINE [Concomitant]
  9. PRAVACHOL [Concomitant]
  10. PRANDIN (DEFLAZACORT) [Concomitant]
  11. AVANDIA [Concomitant]
  12. PREDNISONE [Concomitant]
  13. NIFEREX (POLYSACCHARIDE-IRON COMPLEX) [Concomitant]
  14. NEURONTIN [Concomitant]
  15. LASIX [Concomitant]
  16. COUMADIN [Concomitant]
  17. REGLAN [Concomitant]
  18. PROMED (ALL OTHER NON-THERAPEUTIC PRODUCTS) [Concomitant]

REACTIONS (3)
  - DECUBITUS ULCER [None]
  - URINARY TRACT INFECTION ENTEROCOCCAL [None]
  - UROSEPSIS [None]
